FAERS Safety Report 26212045 (Version 1)
Quarter: 2025Q4

REPORT INFORMATION
  Report Type: Spontaneous
  Country: EU (occurrence: EU)
  Receive Date: 20251230
  Receipt Date: 20251230
  Transmission Date: 20260118
  Serious: Yes (Hospitalization)
  Sender: ROCHE
  Company Number: None

PATIENT
  Age: 65 Year
  Sex: Female
  Weight: 35 kg

DRUGS (3)
  1. TRASTUZUMAB [Suspect]
     Active Substance: TRASTUZUMAB
     Indication: Breast cancer
     Route: 058
     Dates: start: 20250328, end: 20251103
  2. DOCETAXEL [Concomitant]
     Active Substance: DOCETAXEL
     Route: 042
     Dates: start: 20250328, end: 202505
  3. PERTUZUMAB [Concomitant]
     Active Substance: PERTUZUMAB
     Indication: Breast cancer
     Route: 058
     Dates: start: 20250328, end: 202507

REACTIONS (1)
  - Ventricular dysfunction [Recovered/Resolved]

NARRATIVE: CASE EVENT DATE: 20251021
